FAERS Safety Report 14630800 (Version 1)
Quarter: 2018Q1

REPORT INFORMATION
  Report Type: Spontaneous
  Country: US (occurrence: US)
  Receive Date: 20180313
  Receipt Date: 20180313
  Transmission Date: 20180509
  Serious: No
  Sender: FDA-Public Use
  Company Number: US-ASTRAZENECA-2018SE28675

PATIENT
  Age: 60 Year
  Sex: Female
  Weight: 78 kg

DRUGS (5)
  1. METOPROLOL SUCCINATE. [Suspect]
     Active Substance: METOPROLOL SUCCINATE
     Indication: BLOOD PRESSURE MEASUREMENT
     Route: 048
     Dates: start: 2005
  2. CRESTOR [Suspect]
     Active Substance: ROSUVASTATIN CALCIUM
     Indication: HYPERTENSION
     Route: 048
     Dates: start: 2005
  3. METOPROLOL SUCCINATE. [Suspect]
     Active Substance: METOPROLOL SUCCINATE
     Indication: BLOOD PRESSURE MEASUREMENT
     Route: 048
     Dates: start: 201704
  4. FENOFIBRATE. [Concomitant]
     Active Substance: FENOFIBRATE
     Dates: start: 2005
  5. HYDROCHLOROTHIAZIDE. [Concomitant]
     Active Substance: HYDROCHLOROTHIAZIDE
     Indication: JOINT SWELLING
     Dates: start: 2010

REACTIONS (19)
  - Arthropathy [Unknown]
  - Blood pressure increased [Unknown]
  - Weight decreased [Unknown]
  - Discomfort [Unknown]
  - Joint stiffness [Unknown]
  - Blood calcium decreased [Unknown]
  - Off label use [Unknown]
  - Mitral valve incompetence [Unknown]
  - Bone density decreased [Unknown]
  - Intentional product misuse [Not Recovered/Not Resolved]
  - Osteoporosis [Unknown]
  - Stress [Unknown]
  - Arthritis [Unknown]
  - Osteopenia [Unknown]
  - Glucose tolerance impaired [Unknown]
  - Overweight [Unknown]
  - Meniscus injury [Unknown]
  - Fall [Unknown]
  - Product use in unapproved indication [Unknown]

NARRATIVE: CASE EVENT DATE: 2011
